FAERS Safety Report 11156663 (Version 1)
Quarter: 2015Q2

REPORT INFORMATION
  Report Type: Spontaneous
  Country: US (occurrence: US)
  Receive Date: 20150602
  Receipt Date: 20150602
  Transmission Date: 20150821
  Serious: Yes (Other)
  Sender: FDA-Public Use
  Company Number: US-TEVA-565144USA

PATIENT
  Sex: Female

DRUGS (1)
  1. COPAXONE [Suspect]
     Active Substance: GLATIRAMER ACETATE
     Indication: MULTIPLE SCLEROSIS
     Route: 065
     Dates: start: 20040825

REACTIONS (5)
  - Knee arthroplasty [Unknown]
  - Depressed mood [Unknown]
  - Oedema peripheral [Unknown]
  - Immediate post-injection reaction [Unknown]
  - Arthritis [Unknown]
